FAERS Safety Report 5116995-7 (Version None)
Quarter: 2006Q3

REPORT INFORMATION
  Report Type: 
  Country: None (occurrence: None)
  Receive Date: 20060928
  Receipt Date: 20060927
  Transmission Date: 20061208
  Serious: Yes (Hospitalization)
  Sender: FDA-Public Use
  Company Number: DE-MERCK-0609DEU00094

PATIENT
  Age: 81 Year
  Sex: Female

DRUGS (10)
  1. FOSAMAX [Suspect]
     Indication: OSTEOPOROSIS
     Route: 048
     Dates: end: 20060905
  2. CITALOPRAM [Concomitant]
     Route: 065
  3. PANTOPRAZOLE SODIUM [Concomitant]
     Route: 065
  4. TORSEMIDE [Concomitant]
     Route: 065
  5. LISINOPRIL [Concomitant]
     Route: 065
  6. CALCIUM CARBONATE AND CHOLECALCIFEROL [Concomitant]
     Route: 065
  7. DIPYRONE [Concomitant]
     Route: 065
  8. POLYETHYLENE GLYCOL [Concomitant]
     Route: 065
  9. BUPRENORPHINE [Concomitant]
     Route: 061
  10. HEPARIN [Concomitant]
     Route: 065

REACTIONS (1)
  - BURN OESOPHAGEAL [None]
